FAERS Safety Report 9051826 (Version 2)
Quarter: 2014Q1

REPORT INFORMATION
  Report Type: Spontaneous
  Country: US (occurrence: US)
  Receive Date: 20130207
  Receipt Date: 20140128
  Transmission Date: 20141002
  Serious: Yes (Hospitalization)
  Sender: FDA-Public Use
  Company Number: US-BAYER-2013-014225

PATIENT
  Age: 37 Year
  Sex: Female
  Weight: 205 kg

DRUGS (46)
  1. YAZ [Suspect]
  2. GIANVI [Suspect]
  3. ALLEGRA [Concomitant]
  4. PHENERGAN [Concomitant]
     Dosage: UNK UNK, PRN
  5. ASTEPRO [Concomitant]
     Dosage: UNK UNK, PRN
  6. VERAMYST [Concomitant]
  7. MOTRIN [Concomitant]
     Dosage: 600 MG, PRN
  8. ZANAFLEX [Concomitant]
     Dosage: 4 MG, PRN
  9. FLEXERIL [Concomitant]
     Dosage: 10 MG, BID
  10. MAALOX [Concomitant]
     Dosage: 30 ML, UNK
     Route: 048
     Dates: start: 20110107
  11. ZOFRAN [Concomitant]
     Indication: NAUSEA
     Dosage: 8 MG; 4 MG EVERY SIX HOURS AS NEEDED
     Route: 042
  12. ZOFRAN [Concomitant]
     Indication: VOMITING
  13. MORPHINE [Concomitant]
     Indication: PAIN
     Dosage: 4 MG Q 4 HOURS PRN
     Route: 042
     Dates: start: 20110107, end: 20110204
  14. PROTONIX [Concomitant]
  15. COMPAZINE [Concomitant]
  16. BENTYL [Concomitant]
  17. GAS-X [Concomitant]
  18. VICODIN [Concomitant]
     Indication: PAIN
     Dosage: 5/500 MG 1 TO 2 EVERY 6 HOURS AS NEEDED
  19. MYLANTA AR [Concomitant]
     Dosage: 30 MG, UNK
     Route: 048
  20. METROGEL [Concomitant]
  21. FLAGYL [Concomitant]
     Dosage: 500 MG, BID 7 DAYS
  22. PRILOSEC [Concomitant]
     Dosage: 20 MG, BID
     Route: 048
  23. REGLAN [Concomitant]
     Dosage: 5 MG, TID
  24. ALLERGY SHOTS [Concomitant]
     Indication: MULTIPLE ALLERGIES
     Dosage: .5 CC 2 SHOTS [PER] WEEK
     Route: 058
  25. XANAX [Concomitant]
     Dosage: 0.5 MG, PRN
     Route: 048
  26. PERCOCET [Concomitant]
     Dosage: 5 MG/325 MG 1-2 Q4H PRN
     Route: 048
  27. KETOROLAC [Concomitant]
     Dosage: 15 MG, UNK
     Route: 042
     Dates: start: 20110204
  28. MENTHOL [MENTHOL] [Concomitant]
     Indication: OROPHARYNGEAL PAIN
     Dosage: UNK UNK, PRN
     Dates: start: 20110204
  29. PHENOL [Concomitant]
     Indication: OROPHARYNGEAL PAIN
     Dosage: UNK UNK, PRN
     Dates: start: 20110204
  30. FAMOTIDINE [Concomitant]
     Dosage: 20 MG, UNK EVERY) 12 H
     Route: 042
     Dates: start: 20110204, end: 20110206
  31. FENTANYL [Concomitant]
     Dosage: 50 MCG
     Route: 042
     Dates: start: 20110204, end: 20110209
  32. DEXAMETHASONE [Concomitant]
     Dosage: 4 MG, UNK
     Dates: start: 20110204
  33. DIPHENHYDRAMINE [Concomitant]
     Dosage: 25 MG, UNK
     Dates: start: 20110204
  34. GLYCOPYRROLATE [Concomitant]
     Dosage: 0.55 MG, UNK
     Dates: start: 20110204
  35. HYDROMORPHONE [Concomitant]
     Dosage: 3.5 MG, UNK
     Dates: start: 20110204
  36. LIDOCAINE [Concomitant]
     Dosage: 100 MG, UNK
     Dates: start: 20110204
  37. MIDAZOLAM [Concomitant]
     Dosage: 4 MG, UNK
     Dates: start: 20110204
  38. NEOSTIGMINE [Concomitant]
     Dosage: 3 MG, UNK
     Dates: start: 20110204
  39. PROCHLORPERAZINE [Concomitant]
     Dosage: 5 MG, UNK
     Dates: start: 20110204
  40. PROPOFOL [Concomitant]
     Dosage: 200 MG, UNK
     Dates: start: 20110204
  41. ROCURONIUM [Concomitant]
     Dosage: 35 MG, UNK
     Dates: start: 20110204
  42. SCOPOLAMINE [Concomitant]
     Dosage: 1.5 MG, UNK
     Dates: start: 20110204
  43. SUCCINYLCHOLINE CHLORIDE [Concomitant]
     Dosage: 100 MG, UNK
     Dates: start: 20110204
  44. BUPIVACAINE [Concomitant]
     Dosage: 20 ML, UNK
     Dates: start: 20110204
  45. CONRAY [IOTALAMATE SODIUM] [Concomitant]
     Indication: CHOLANGIOGRAM
     Dosage: 10 ML, UNK
     Dates: start: 20110204
  46. CEFAZOLIN SODIUM [Concomitant]
     Dosage: 1 MG, UNK
     Route: 042
     Dates: start: 20110207

REACTIONS (3)
  - Cholecystitis chronic [None]
  - Pulmonary embolism [Recovering/Resolving]
  - Deep vein thrombosis [None]
